FAERS Safety Report 4381019-6 (Version None)
Quarter: 2004Q2

REPORT INFORMATION
  Report Type: 
  Country: None (occurrence: None)
  Receive Date: 20040617
  Receipt Date: 20040617
  Transmission Date: 20050107
  Serious: No
  Sender: FDA-Public Use
  Company Number: None

PATIENT

DRUGS (6)
  1. DEMEROL [Suspect]
     Dosage: INJECTABLE
  2. DEMEROL [Suspect]
     Dosage: INJECTABLE
  3. DEMEROL [Suspect]
     Dosage: INJECTABLE
  4. MORPHINE SULFATE [Suspect]
     Dosage: INJECTABLE
  5. MORPHINE SULFATE [Suspect]
     Dosage: INJECTABLE
  6. ANZEMET [Suspect]
     Dosage: INJECTABLE

REACTIONS (1)
  - MEDICATION ERROR [None]
